FAERS Safety Report 24070552 (Version 1)
Quarter: 2024Q3

REPORT INFORMATION
  Report Type: Report from Study
  Country: CL (occurrence: CL)
  Receive Date: 20240710
  Receipt Date: 20240710
  Transmission Date: 20241017
  Serious: No
  Sender: ROCHE
  Company Number: CL-ROCHE-3556109

PATIENT
  Age: 85 Year
  Sex: Male

DRUGS (1)
  1. VABYSMO [Suspect]
     Active Substance: FARICIMAB\FARICIMAB-SVOA
     Indication: Diabetic retinal oedema
     Dosage: 3 DOSES?ON AN UNKNOWN DATE IN JAN/2023, HE RECEIVED LAST DOSE OF FARICIMAB
     Route: 050

REACTIONS (1)
  - Drug ineffective [Unknown]
